FAERS Safety Report 10648705 (Version 1)
Quarter: 2014Q4

REPORT INFORMATION
  Report Type: Spontaneous
  Country: US (occurrence: None)
  Receive Date: 20141205
  Receipt Date: 20141205
  Transmission Date: 20150529
  Serious: No
  Sender: FDA-Public Use
  Company Number: USA-2014095006

PATIENT
  Sex: Female
  Weight: 84.82 kg

DRUGS (5)
  1. IBUPROFEN (UNKNOWN) [Concomitant]
     Active Substance: IBUPROFEN
  2. MUCINEX (GUAIFENESIN) [Concomitant]
  3. POMALYST [Suspect]
     Active Substance: POMALIDOMIDE
     Indication: PLASMA CELL MYELOMA
     Dosage: 21 IN 21 D, PO
     Route: 048
     Dates: start: 20131116
  4. DEXAMETHASONE (DEXAMETHASONE) [Concomitant]
     Active Substance: DEXAMETHASONE
  5. TAMIFLU [Concomitant]
     Active Substance: OSELTAMIVIR PHOSPHATE

REACTIONS (3)
  - Alopecia [None]
  - Dyspnoea [None]
  - Headache [None]
